FAERS Safety Report 21075747 (Version 1)
Quarter: 2022Q3

REPORT INFORMATION
  Report Type: Spontaneous
  Country: US (occurrence: None)
  Receive Date: 20220712
  Receipt Date: 20220712
  Transmission Date: 20221027
  Serious: No
  Sender: FDA-Public Use
  Company Number: None

PATIENT
  Age: 33 Year
  Sex: Female

DRUGS (1)
  1. OTEZLA [Suspect]
     Active Substance: APREMILAST
     Indication: Psoriasis
     Dosage: 30 MG TWICE DAILY ORAL?
     Route: 048
     Dates: start: 20220103

REACTIONS (5)
  - Headache [None]
  - Migraine [None]
  - Drug ineffective [None]
  - Visual impairment [None]
  - Vomiting [None]

NARRATIVE: CASE EVENT DATE: 20220103
